FAERS Safety Report 10970300 (Version 1)
Quarter: 2015Q1

REPORT INFORMATION
  Report Type: Spontaneous
  Country: FR (occurrence: FR)
  Receive Date: 20150331
  Receipt Date: 20150331
  Transmission Date: 20150721
  Serious: Yes (Other)
  Sender: FDA-Public Use
  Company Number: FR-PFIZER INC-2015110661

PATIENT
  Age: 38 Year
  Sex: Male

DRUGS (2)
  1. ATENOLOL. [Suspect]
     Active Substance: ATENOLOL
     Dosage: UNK, DAILY
     Route: 048
     Dates: start: 201402, end: 201412
  2. FLECAINE [Suspect]
     Active Substance: FLECAINIDE
     Route: 048
     Dates: start: 201402, end: 201412

REACTIONS (2)
  - Hypoacusis [Recovering/Resolving]
  - Vertigo [Recovering/Resolving]

NARRATIVE: CASE EVENT DATE: 201404
